FAERS Safety Report 10500095 (Version 1)
Quarter: 2014Q4

REPORT INFORMATION
  Report Type: Spontaneous
  Country: US (occurrence: US)
  Receive Date: 20141006
  Receipt Date: 20141006
  Transmission Date: 20150528
  Serious: No
  Sender: FDA-Public Use
  Company Number: US-AMGEN INC.-USASP2014052425

PATIENT
  Age: 69 Year
  Sex: Female

DRUGS (2)
  1. PROLIA [Suspect]
     Active Substance: DENOSUMAB
     Indication: OSTEOPOROSIS POSTMENOPAUSAL
     Dosage: UNK
     Route: 065
     Dates: start: 201406
  2. LISINOPRIL. [Concomitant]
     Active Substance: LISINOPRIL
     Dosage: 5 MG, BID
     Route: 065

REACTIONS (4)
  - Head discomfort [Recovering/Resolving]
  - Mobility decreased [Recovering/Resolving]
  - Feeling abnormal [Recovering/Resolving]
  - Blood pressure diastolic increased [Recovered/Resolved]

NARRATIVE: CASE EVENT DATE: 2014
